FAERS Safety Report 13154003 (Version 1)
Quarter: 2017Q1

REPORT INFORMATION
  Report Type: Spontaneous
  Country: GB (occurrence: GB)
  Receive Date: 20170126
  Receipt Date: 20170126
  Transmission Date: 20170428
  Serious: Yes (Other)
  Sender: FDA-Public Use
  Company Number: GB-TEVA-732234ACC

PATIENT
  Age: 69 Year
  Sex: Female

DRUGS (2)
  1. FUROSEMIDE. [Suspect]
     Active Substance: FUROSEMIDE
     Indication: FLUID RETENTION
  2. DIGOXIN. [Concomitant]
     Active Substance: DIGOXIN
     Indication: CARDIAC FAILURE

REACTIONS (5)
  - Chest pain [Unknown]
  - Cardiac fibrillation [Unknown]
  - Pain [Unknown]
  - Hypertension [Unknown]
  - Muscle spasms [Unknown]
